FAERS Safety Report 11392599 (Version 1)
Quarter: 2015Q3

REPORT INFORMATION
  Report Type: Spontaneous
  Country: FI (occurrence: FI)
  Receive Date: 20150818
  Receipt Date: 20150818
  Transmission Date: 20151125
  Serious: Yes (Other)
  Sender: FDA-Public Use
  Company Number: FI-BAYER-2015-370034

PATIENT
  Age: 24 Year
  Sex: Female

DRUGS (1)
  1. QLAIRA [Suspect]
     Active Substance: DIENOGEST\ESTRADIOL VALERATE
     Dosage: UNK
     Route: 048
     Dates: start: 201103, end: 20150517

REACTIONS (6)
  - Drug ineffective [None]
  - Pregnancy on oral contraceptive [None]
  - Amenorrhoea [None]
  - Abortion spontaneous [None]
  - Menstruation irregular [None]
  - Abdominal discomfort [None]

NARRATIVE: CASE EVENT DATE: 2015
